FAERS Safety Report 23321780 (Version 9)
Quarter: 2024Q4

REPORT INFORMATION
  Report Type: Report from Study
  Country: CO (occurrence: CO)
  Receive Date: 20231220
  Receipt Date: 20241226
  Transmission Date: 20250115
  Serious: Yes (Other)
  Sender: TAKEDA
  Company Number: CO-TAKEDA-2023TUS114838

PATIENT
  Age: 43 Year
  Sex: Female
  Weight: 68 kg

DRUGS (1)
  1. VEDOLIZUMAB [Suspect]
     Active Substance: VEDOLIZUMAB
     Indication: Colitis ulcerative
     Dosage: 300 MILLIGRAM

REACTIONS (37)
  - Haematochezia [Unknown]
  - Colitis ulcerative [Unknown]
  - Urticaria [Unknown]
  - Depressive symptom [Unknown]
  - Crying [Unknown]
  - Feeling of despair [Unknown]
  - Anxiety [Unknown]
  - Thinking abnormal [Unknown]
  - Apathy [Unknown]
  - Mental fatigue [Unknown]
  - Irritability [Unknown]
  - Neck pain [Not Recovered/Not Resolved]
  - Mobility decreased [Not Recovered/Not Resolved]
  - Oral herpes [Unknown]
  - Dyschezia [Unknown]
  - Product dose omission issue [Unknown]
  - Faeces discoloured [Unknown]
  - Visual acuity reduced [Unknown]
  - Discomfort [Not Recovered/Not Resolved]
  - Haemorrhoids [Unknown]
  - Headache [Not Recovered/Not Resolved]
  - Arthralgia [Not Recovered/Not Resolved]
  - Fatigue [Not Recovered/Not Resolved]
  - Pain in extremity [Unknown]
  - Pyrexia [Unknown]
  - Weight decreased [Unknown]
  - Anaemia [Unknown]
  - Asthenia [Unknown]
  - Haemoglobin decreased [Unknown]
  - Weight increased [Unknown]
  - Serum ferritin decreased [Unknown]
  - Diarrhoea [Unknown]
  - Frequent bowel movements [Unknown]
  - Stress [Unknown]
  - Insomnia [Unknown]
  - Abdominal pain [Unknown]
  - Vomiting [Unknown]

NARRATIVE: CASE EVENT DATE: 20231124
